FAERS Safety Report 4588702-8 (Version None)
Quarter: 2005Q1

REPORT INFORMATION
  Report Type: 
  Country: None (occurrence: None)
  Receive Date: 20050214
  Receipt Date: 20050214
  Transmission Date: 20050727
  Serious: Yes (Life-Threatening)
  Sender: FDA-Public Use
  Company Number: None

PATIENT
  Age: 77 Year
  Sex: Female
  Weight: 68.0396 kg

DRUGS (3)
  1. HUMIRA 40 MG Q 14 D [Suspect]
     Indication: RHEUMATOID ARTHRITIS
     Dosage: S/Q 40 MG Q 14 D
     Route: 058
     Dates: start: 20040301, end: 20040701
  2. METHOTREXATE [Suspect]
     Indication: BREAST CANCER
     Dosage: 20 MG PO Q 7 D
     Route: 048
     Dates: start: 19910901
  3. METHOTREXATE [Suspect]
     Indication: LYMPHOMA
     Dosage: 20 MG PO Q 7 D
     Route: 048
     Dates: start: 19910901

REACTIONS (1)
  - FOLLICLE CENTRE LYMPHOMA, FOLLICULAR GRADE I, II, III [None]
